FAERS Safety Report 24805206 (Version 1)
Quarter: 2025Q1

REPORT INFORMATION
  Report Type: Spontaneous
  Country: US (occurrence: US)
  Receive Date: 20250103
  Receipt Date: 20250103
  Transmission Date: 20250409
  Serious: Yes (Other)
  Sender: ALCON
  Company Number: US-ALCON LABORATORIES-ALC2024US005644

PATIENT
  Sex: Female

DRUGS (1)
  1. SYSTANE ULTRA PRESERVATIVE FREE [Suspect]
     Active Substance: POLYETHYLENE GLYCOL 400\PROPYLENE GLYCOL
     Indication: Product used for unknown indication
     Route: 047

REACTIONS (2)
  - Eye infection fungal [Recovered/Resolved]
  - Product design issue [Unknown]
